FAERS Safety Report 16251207 (Version 1)
Quarter: 2019Q2

REPORT INFORMATION
  Report Type: Spontaneous
  Country: US (occurrence: US)
  Receive Date: 20190426
  Receipt Date: 20190426
  Transmission Date: 20190711
  Serious: Yes (Disabling, Other)
  Sender: FDA-Public Use
  Company Number: None

PATIENT
  Age: 51 Year
  Sex: Female
  Weight: 196 kg

DRUGS (1)
  1. TAXOTERE [Suspect]
     Active Substance: DOCETAXEL
     Indication: NEOPLASM
     Dosage: ?          QUANTITY:1 INJECTION(S);OTHER FREQUENCY:EVERY 3 WEEKS;?
     Route: 042
     Dates: start: 20181213, end: 20190124

REACTIONS (11)
  - Nightmare [None]
  - Back pain [None]
  - Gait disturbance [None]
  - Headache [None]
  - Cardiac disorder [None]
  - Balance disorder [None]
  - Myalgia [None]
  - Dyspnoea [None]
  - Insomnia [None]
  - Loss of personal independence in daily activities [None]
  - Negative thoughts [None]

NARRATIVE: CASE EVENT DATE: 20190103
